FAERS Safety Report 6648812-8 (Version None)
Quarter: 2010Q1

REPORT INFORMATION
  Report Type: 
  Country: None (occurrence: None)
  Receive Date: 20100324
  Receipt Date: 20100312
  Transmission Date: 20100710
  Serious: Yes (Hospitalization)
  Sender: FDA-Public Use
  Company Number: PHHY2010MX03064

PATIENT
  Age: 66 Year
  Sex: Female

DRUGS (7)
  1. ACLASTA [Suspect]
     Indication: OSTEOPOROSIS
     Dosage: 5 MG, ONCE/SINGLE
     Route: 042
     Dates: start: 20090801
  2. GLIBENCLAMIDE [Concomitant]
     Dosage: UNK
     Dates: start: 19890101
  3. BEZAFIBRATE [Concomitant]
     Dosage: UNK
     Dates: start: 19890101
  4. PRAVASTATIN [Concomitant]
     Dosage: UNK
     Dates: start: 19890101
  5. NIFEDIPINE [Concomitant]
     Dosage: UNK
     Dates: start: 19890101
  6. CHLORINE [Concomitant]
     Dosage: UNK
     Route: 050
     Dates: start: 20090820
  7. SULPHATE [Concomitant]
     Dosage: UNK
     Route: 050
     Dates: start: 20090820

REACTIONS (3)
  - DERMATITIS ALLERGIC [None]
  - FUNGAL SKIN INFECTION [None]
  - SKIN IRRITATION [None]
